FAERS Safety Report 17794705 (Version 1)
Quarter: 2020Q2

REPORT INFORMATION
  Report Type: Spontaneous
  Country: GB (occurrence: GB)
  Receive Date: 20200515
  Receipt Date: 20200515
  Transmission Date: 20200714
  Serious: Yes (Hospitalization, Other)
  Sender: FDA-Public Use
  Company Number: GB-ASTRAZENECA-2020SE62982

PATIENT
  Age: 20995 Day
  Sex: Male

DRUGS (1)
  1. TAGRISSO [Suspect]
     Active Substance: OSIMERTINIB
     Indication: LUNG CANCER METASTATIC
     Dosage: 80.0MG UNKNOWN
     Route: 048
     Dates: start: 20200412, end: 20200508

REACTIONS (3)
  - Platelet count decreased [Unknown]
  - Seizure [Unknown]
  - Metastases to bone marrow [Unknown]

NARRATIVE: CASE EVENT DATE: 20200429
